FAERS Safety Report 14297153 (Version 3)
Quarter: 2018Q3

REPORT INFORMATION
  Report Type: Spontaneous
  Country: US (occurrence: US)
  Receive Date: 20171218
  Receipt Date: 20180918
  Transmission Date: 20181010
  Serious: No
  Sender: FDA-Public Use
  Company Number: US-GLAXOSMITHKLINE-US2017GSK194429

PATIENT
  Sex: Female

DRUGS (6)
  1. CARVEDILOL PHOSPHATE. [Suspect]
     Active Substance: CARVEDILOL PHOSPHATE
     Indication: HYPERTENSION
     Dosage: 10 MG, QD
     Route: 048
  2. COREG CR [Suspect]
     Active Substance: CARVEDILOL PHOSPHATE
     Indication: HEART RATE INCREASED
     Dosage: 20 MG, UNK
  3. COENZYME Q10 [Concomitant]
     Active Substance: UBIDECARENONE
     Indication: PRODUCT USED FOR UNKNOWN INDICATION
  4. ASPIRIN. [Concomitant]
     Active Substance: ASPIRIN
     Indication: PRODUCT USED FOR UNKNOWN INDICATION
  5. COREG CR [Suspect]
     Active Substance: CARVEDILOL PHOSPHATE
     Dosage: DOSE/ STRENGTH 20 MG, EXTRA DOSE TWICE WEEKLY
  6. COREG CR [Suspect]
     Active Substance: CARVEDILOL PHOSPHATE
     Indication: CARDIAC DISORDER
     Dosage: DOSE/STRENGTH 10 MG

REACTIONS (5)
  - Skin erosion [Unknown]
  - Rash [Recovering/Resolving]
  - Extra dose administered [Unknown]
  - Drug dose omission [Unknown]
  - Skin exfoliation [Unknown]
